FAERS Safety Report 25733463 (Version 1)
Quarter: 2025Q3

REPORT INFORMATION
  Report Type: Report from Study
  Country: US (occurrence: US)
  Receive Date: 20250828
  Receipt Date: 20250828
  Transmission Date: 20251020
  Serious: No
  Sender: SANDOZ
  Company Number: US-SANDOZ-SDZ2024US005743

PATIENT
  Age: 6 Year
  Sex: Male

DRUGS (6)
  1. OMNITROPE [Suspect]
     Active Substance: SOMATROPIN
     Dosage: 0.7 MG, QD
     Route: 058
     Dates: start: 20140102
  2. OMNITROPE [Suspect]
     Active Substance: SOMATROPIN
     Dosage: 0.7 MG, QD
     Route: 058
     Dates: start: 20140102
  3. OMNITROPE [Suspect]
     Active Substance: SOMATROPIN
     Indication: Short stature
     Route: 058
  4. OMNITROPE [Suspect]
     Active Substance: SOMATROPIN
     Indication: Short stature
     Route: 058
  5. OMNITROPE [Suspect]
     Active Substance: SOMATROPIN
     Dosage: 0.7 MG 2 DOSE EVERY N/A N/A
     Route: 058
  6. OMNITROPE [Suspect]
     Active Substance: SOMATROPIN
     Dosage: 0.7 MG 2 DOSE EVERY N/A N/A
     Route: 058

REACTIONS (7)
  - Injection site discomfort [Unknown]
  - Accidental exposure to product [Unknown]
  - Exposure via skin contact [Unknown]
  - Product administration error [Unknown]
  - Incorrect dose administered [Unknown]
  - Drug dose omission by device [Unknown]
  - Device breakage [Unknown]

NARRATIVE: CASE EVENT DATE: 20240109
